FAERS Safety Report 8972491 (Version 1)
Quarter: 2012Q4

REPORT INFORMATION
  Report Type: 
  Country: US (occurrence: US)
  Receive Date: 20121219
  Receipt Date: 20121219
  Transmission Date: 20130627
  Serious: No
  Sender: FDA-Public Use
  Company Number: US-BIOGENIDEC-2012BI054969

PATIENT
  Sex: Male

DRUGS (2)
  1. AVONEX [Suspect]
     Indication: MULTIPLE SCLEROSIS
     Route: 030
  2. AVONEX [Suspect]
     Indication: MULTIPLE SCLEROSIS
     Route: 030
     Dates: start: 20110824, end: 20120701

REACTIONS (6)
  - Adverse event [Unknown]
  - General physical health deterioration [Unknown]
  - Asthenia [Unknown]
  - Depressed mood [Unknown]
  - Drug ineffective [Unknown]
  - Feeling abnormal [Unknown]
